FAERS Safety Report 4495489-6 (Version None)
Quarter: 2004Q4

REPORT INFORMATION
  Report Type: 
  Country: None (occurrence: None)
  Receive Date: 20041108
  Receipt Date: 20031209
  Transmission Date: 20050328
  Serious: Yes (Hospitalization)
  Sender: FDA-Public Use
  Company Number: BE-JNJFOC-20031006442

PATIENT
  Age: 33 Year
  Sex: Male

DRUGS (1)
  1. PROPULSID [Suspect]
     Route: 065
     Dates: start: 20030508

REACTIONS (1)
  - INFECTION IN AN IMMUNOCOMPROMISED HOST [None]
